FAERS Safety Report 16656899 (Version 6)
Quarter: 2020Q2

REPORT INFORMATION
  Report Type: Report from Study
  Country: None (occurrence: US)
  Receive Date: 20190801
  Receipt Date: 20200519
  Transmission Date: 20200713
  Serious: Yes (Hospitalization, Other)
  Sender: FDA-Public Use
  Company Number: US-ABBVIE-19K-163-2862818-00

PATIENT
  Age: 69 Year
  Sex: Male
  Weight: 93.07 kg

DRUGS (8)
  1. HUMIRA [Suspect]
     Active Substance: ADALIMUMAB
     Indication: RHEUMATOID ARTHRITIS
     Dosage: CITRATE FREE
     Route: 058
     Dates: start: 2019, end: 2019
  2. FOLIC ACID. [Concomitant]
     Active Substance: FOLIC ACID
     Indication: PRODUCT USED FOR UNKNOWN INDICATION
  3. PRILOSEC [Concomitant]
     Active Substance: OMEPRAZOLE MAGNESIUM
     Indication: DYSPEPSIA
  4. HUMIRA [Suspect]
     Active Substance: ADALIMUMAB
     Indication: CROHN^S DISEASE
     Dosage: CITRATE FREE
     Route: 058
     Dates: start: 20181129, end: 20190530
  5. FERROUS GLUCONATE [Concomitant]
     Active Substance: FERROUS GLUCONATE
     Indication: MINERAL SUPPLEMENTATION
  6. HUMIRA [Suspect]
     Active Substance: ADALIMUMAB
     Indication: COLITIS ULCERATIVE
     Dosage: CITRATE FREE
     Route: 058
     Dates: start: 20190620
  7. AMLODIPINE [Concomitant]
     Active Substance: AMLODIPINE BESYLATE
     Indication: BLOOD PRESSURE MEASUREMENT
  8. PROPAFENONE. [Concomitant]
     Active Substance: PROPAFENONE
     Indication: ATRIAL FIBRILLATION

REACTIONS (17)
  - Dizziness [Unknown]
  - Cytomegalovirus test positive [Not Recovered/Not Resolved]
  - Crohn^s disease [Not Recovered/Not Resolved]
  - Loss of personal independence in daily activities [Not Recovered/Not Resolved]
  - Diplopia [Recovered/Resolved]
  - Colitis [Unknown]
  - Haematochezia [Recovered/Resolved]
  - Transient ischaemic attack [Unknown]
  - Drug ineffective [Unknown]
  - Paraesthesia oral [Unknown]
  - Pancreatitis [Recovered/Resolved]
  - Diarrhoea haemorrhagic [Unknown]
  - Feeling abnormal [Unknown]
  - Frequent bowel movements [Recovering/Resolving]
  - Neck pain [Unknown]
  - Haemoglobin decreased [Not Recovered/Not Resolved]
  - Diarrhoea [Recovered/Resolved]

NARRATIVE: CASE EVENT DATE: 2018
